FAERS Safety Report 21996406 (Version 7)
Quarter: 2025Q4

REPORT INFORMATION
  Report Type: Spontaneous
  Country: US (occurrence: US)
  Receive Date: 20230215
  Receipt Date: 20251008
  Transmission Date: 20260117
  Serious: Yes (Death, Hospitalization, Other)
  Sender: PFIZER
  Company Number: US-PFIZER INC-PV202300027986

PATIENT
  Age: 66 Year
  Sex: Female
  Weight: 122 kg

DRUGS (4)
  1. IBRANCE [Suspect]
     Active Substance: PALBOCICLIB
     Indication: Hormone receptor positive breast cancer
     Dosage: 125 MG, CYCLIC (1 X 125 MG TABLET, ONCE DAILY FOR 21 DAYS THEN OFF X 7 DAYS)
     Route: 048
     Dates: start: 20230201
  2. IBRANCE [Suspect]
     Active Substance: PALBOCICLIB
     Indication: Invasive ductal breast carcinoma
  3. LETROZOLE [Concomitant]
     Active Substance: LETROZOLE
     Indication: Hormone receptor positive breast cancer
     Dosage: UNK, 1X/DAY (TOOK LETROZOLE SAME TIME AS SHE TOOK IBRANCE AROUND 10:30 IN THE MORNING)
  4. ZOMETA [Concomitant]
     Active Substance: ZOLEDRONIC ACID
     Indication: Metastases to bone
     Dosage: INFUSION EVERY 3 MONTHS

REACTIONS (10)
  - Cardiac disorder [Fatal]
  - Sepsis [Fatal]
  - Thrombosis [Fatal]
  - Influenza [Not Recovered/Not Resolved]
  - Leukopenia [Unknown]
  - Neutropenia [Unknown]
  - Nausea [Unknown]
  - Fatigue [Unknown]
  - Nasal congestion [Not Recovered/Not Resolved]
  - Malaise [Unknown]

NARRATIVE: CASE EVENT DATE: 20251003
